FAERS Safety Report 5154709-5 (Version None)
Quarter: 2006Q4

REPORT INFORMATION
  Report Type: 
  Country: None (occurrence: None)
  Receive Date: 20061116
  Receipt Date: 20061116
  Transmission Date: 20070319
  Serious: Yes (Life-Threatening)
  Sender: FDA-Public Use
  Company Number: None

PATIENT
  Age: 81 Year
  Sex: Male
  Weight: 74.8435 kg

DRUGS (1)
  1. HALOPERIDOL [Suspect]
     Indication: DELIRIUM
     Dates: start: 20060723, end: 20060727

REACTIONS (6)
  - AGITATION [None]
  - CARDIAC ARREST [None]
  - DELIRIUM [None]
  - DEMENTIA [None]
  - TORSADE DE POINTES [None]
  - VENTRICULAR FIBRILLATION [None]
